FAERS Safety Report 22140921 (Version 1)
Quarter: 2023Q1

REPORT INFORMATION
  Report Type: Spontaneous
  Country: TW (occurrence: TW)
  Receive Date: 20230327
  Receipt Date: 20230327
  Transmission Date: 20230417
  Serious: Yes (Death)
  Sender: FDA-Public Use
  Company Number: TW-MYLANLABS-2023M1031187

PATIENT
  Age: 73 Year
  Sex: Female

DRUGS (1)
  1. OGIVRI [Suspect]
     Active Substance: TRASTUZUMAB-DKST
     Indication: Product used for unknown indication
     Dosage: 440 MILLIGRAM (ONCE)
     Route: 042
     Dates: start: 20230224, end: 20230224

REACTIONS (1)
  - Asthenia [Fatal]
